FAERS Safety Report 6945475-9 (Version None)
Quarter: 2010Q3

REPORT INFORMATION
  Report Type: 
  Country: None (occurrence: None)
  Receive Date: 20100827
  Receipt Date: 20100818
  Transmission Date: 20110219
  Serious: Yes (Life-Threatening)
  Sender: FDA-Public Use
  Company Number: GXKR2010US09256

PATIENT
  Age: 65 Year
  Sex: Female

DRUGS (5)
  1. LEVODOPA+CARBIDOPA (NGX) [Suspect]
     Indication: PARKINSON'S DISEASE
     Route: 065
  2. TRIHEXYPHENIDYL (NGX) [Suspect]
     Indication: PARKINSON'S DISEASE
     Route: 065
  3. PRAMIPEXOLE (NGX) [Suspect]
     Indication: PARKINSON'S DISEASE
     Route: 065
  4. RASAGILINE [Suspect]
     Indication: PARKINSON'S DISEASE
     Route: 065
  5. LISINOPRIL [Concomitant]
     Indication: HYPERTENSION
     Route: 065

REACTIONS (5)
  - CHEST PAIN [None]
  - CORONARY ARTERY DISSECTION [None]
  - ELECTROCARDIOGRAM ST SEGMENT ELEVATION [None]
  - RESUSCITATION [None]
  - VENTRICULAR FIBRILLATION [None]
